FAERS Safety Report 19273395 (Version 1)
Quarter: 2021Q2

REPORT INFORMATION
  Report Type: Spontaneous
  Country: US (occurrence: US)
  Receive Date: 20210519
  Receipt Date: 20210519
  Transmission Date: 20210717
  Serious: No
  Sender: FDA-Public Use
  Company Number: US-SA-2021SA164139

PATIENT
  Age: 51 Year
  Sex: Male

DRUGS (16)
  1. METFORMIN [Concomitant]
     Active Substance: METFORMIN HYDROCHLORIDE
  2. DUPIXENT [Suspect]
     Active Substance: DUPILUMAB
     Indication: DERMATITIS ATOPIC
     Dosage: UNK
     Route: 058
     Dates: start: 202101
  3. PRAVASTATIN. [Concomitant]
     Active Substance: PRAVASTATIN
  4. TAMSULOSIN [Concomitant]
     Active Substance: TAMSULOSIN
  5. OMEPRAZOLE. [Concomitant]
     Active Substance: OMEPRAZOLE
  6. EUTHYROX [Concomitant]
     Active Substance: LEVOTHYROXINE SODIUM
  7. METOPROLOL. [Concomitant]
     Active Substance: METOPROLOL
  8. HALOBETASOL PROPIONATE. [Concomitant]
     Active Substance: HALOBETASOL PROPIONATE
  9. FENOFIBRATE. [Concomitant]
     Active Substance: FENOFIBRATE
  10. TRULICITY [Concomitant]
     Active Substance: DULAGLUTIDE
  11. TRAZODONE [Concomitant]
     Active Substance: TRAZODONE HYDROCHLORIDE
  12. JANUVIA [Concomitant]
     Active Substance: SITAGLIPTIN PHOSPHATE
  13. ZOLPIDEM [Concomitant]
     Active Substance: ZOLPIDEM TARTRATE
  14. REPATHA [Concomitant]
     Active Substance: EVOLOCUMAB
  15. VITAMIN D3 [Concomitant]
     Active Substance: CHOLECALCIFEROL
  16. AMLODIPINE [Concomitant]
     Active Substance: AMLODIPINE BESYLATE

REACTIONS (6)
  - Dry skin [Not Recovered/Not Resolved]
  - Skin exfoliation [Not Recovered/Not Resolved]
  - Therapeutic response decreased [Not Recovered/Not Resolved]
  - Pruritus [Not Recovered/Not Resolved]
  - Eczema [Not Recovered/Not Resolved]
  - Skin fissures [Not Recovered/Not Resolved]

NARRATIVE: CASE EVENT DATE: 2021
